FAERS Safety Report 15969092 (Version 3)
Quarter: 2020Q4

REPORT INFORMATION
  Report Type: Report from Study
  Country: NL (occurrence: NL)
  Receive Date: 20190215
  Receipt Date: 20201019
  Transmission Date: 20210113
  Serious: Yes (Other)
  Sender: FDA-Public Use
  Company Number: NL-JNJFOC-20190209962

PATIENT
  Age: 65 Year
  Sex: Male
  Weight: 83 kg

DRUGS (7)
  1. DEXAMETHASONE. [Suspect]
     Active Substance: DEXAMETHASONE
     Route: 048
     Dates: start: 20150922, end: 20180830
  2. DEXAMETHASONE. [Suspect]
     Active Substance: DEXAMETHASONE
     Indication: PLASMA CELL MYELOMA
     Route: 048
     Dates: start: 20140409, end: 20150921
  3. RIBAVIRIN. [Concomitant]
     Active Substance: RIBAVIRIN
     Dates: start: 20180716, end: 20180927
  4. LENALIDOMIDE [Suspect]
     Active Substance: LENALIDOMIDE
     Indication: PLASMA CELL MYELOMA
     Dosage: DAY 1-21/PER 28 DAYS
     Route: 048
     Dates: start: 20140409, end: 20180830
  5. DARATUMUMAB [Suspect]
     Active Substance: DARATUMUMAB
     Indication: PLASMA CELL MYELOMA
     Dosage: STANDARD FREQUENCY
     Route: 042
     Dates: start: 20140409, end: 20180830
  6. RIBAVIRIN. [Concomitant]
     Active Substance: RIBAVIRIN
     Dates: start: 20181010, end: 20190124
  7. RIBAVIRIN. [Concomitant]
     Active Substance: RIBAVIRIN
     Indication: HEPATITIS E
     Dates: start: 20180324, end: 20180413

REACTIONS (1)
  - Hepatitis E [Recovered/Resolved]

NARRATIVE: CASE EVENT DATE: 20180323
